FAERS Safety Report 7379201-9 (Version None)
Quarter: 2011Q1

REPORT INFORMATION
  Report Type: 
  Country: None (occurrence: None)
  Receive Date: 20110328
  Receipt Date: 20110322
  Transmission Date: 20110831
  Serious: Yes (Death, Other)
  Sender: FDA-Public Use
  Company Number: US-AMGEN-US363056

PATIENT
  Age: 74 Year
  Sex: Female

DRUGS (4)
  1. NPLATE [Suspect]
     Dates: start: 20090630, end: 20090721
  2. IMMUNOGLOBULINS [Concomitant]
     Dosage: UNK UNK, UNK
     Route: 042
     Dates: start: 20050801
  3. NPLATE [Suspect]
     Indication: IDIOPATHIC THROMBOCYTOPENIC PURPURA
     Dosage: 3 A?G/KG, UNK
     Route: 058
     Dates: start: 20090630, end: 20090721
  4. RITUXIMAB [Concomitant]
     Dosage: UNK UNK, UNK
     Route: 065
     Dates: start: 20080805, end: 20080826

REACTIONS (2)
  - DEATH [None]
  - THERAPEUTIC RESPONSE DECREASED [None]
